FAERS Safety Report 20825272 (Version 1)
Quarter: 2022Q2

REPORT INFORMATION
  Report Type: Spontaneous
  Country: US (occurrence: US)
  Receive Date: 20220513
  Receipt Date: 20220513
  Transmission Date: 20220721
  Serious: Yes (Death, Other)
  Sender: FDA-Public Use
  Company Number: US-Glenmark Generics Europe Ltd.-GGEL20110800767

PATIENT
  Age: 70 Year
  Sex: Female

DRUGS (2)
  1. LEVOFLOXACIN [Suspect]
     Active Substance: LEVOFLOXACIN
     Indication: Pneumonia
     Route: 065
  2. WARFARIN [Suspect]
     Active Substance: WARFARIN
     Indication: Atrial fibrillation
     Route: 065

REACTIONS (11)
  - Brain injury [Fatal]
  - Cardiac arrest [Fatal]
  - Multiple organ dysfunction syndrome [Fatal]
  - Pericardial effusion [Unknown]
  - Pleural effusion [Unknown]
  - Cardiomegaly [Unknown]
  - International normalised ratio increased [Unknown]
  - Drug interaction [Unknown]
  - Hypotension [Unknown]
  - Dyspnoea exertional [Unknown]
  - Nausea [Unknown]
